FAERS Safety Report 9692305 (Version 3)
Quarter: 2013Q4

REPORT INFORMATION
  Report Type: Spontaneous
  Country: US (occurrence: US)
  Receive Date: 20131118
  Receipt Date: 20131219
  Transmission Date: 20140711
  Serious: Yes (Other)
  Sender: FDA-Public Use
  Company Number: US-SHIRE-ALL1-2013-07627

PATIENT
  Age: 16 Year
  Sex: Male
  Weight: 59.86 kg

DRUGS (10)
  1. VYVANSE [Suspect]
     Indication: DISTURBANCE IN ATTENTION
     Dosage: 20 MG, 1X/DAY:QD
     Route: 048
     Dates: start: 20130925, end: 20131004
  2. VYVANSE [Suspect]
     Indication: ATTENTION DEFICIT/HYPERACTIVITY DISORDER
     Dosage: 20 MG, 1X/DAY:QD
     Route: 048
     Dates: start: 20131015
  3. PROZAC [Concomitant]
     Indication: OBSESSIVE-COMPULSIVE DISORDER
     Dosage: 40 MG, 1X/DAY:QD
     Route: 048
     Dates: start: 2012
  4. PROZAC [Concomitant]
     Indication: ANXIETY
     Dosage: 20 MG, UNKNOWN
     Route: 065
     Dates: end: 2012
  5. STRATTERA [Concomitant]
     Indication: OBSESSIVE-COMPULSIVE DISORDER
     Dosage: 40 MG, 1X/DAY:QD
     Route: 048
     Dates: start: 20130502
  6. STRATTERA [Concomitant]
     Indication: ANXIETY
  7. NASONEX [Concomitant]
     Indication: HYPERSENSITIVITY
     Dosage: 50 ?G, 2X/DAY:BID
     Route: 045
     Dates: start: 20130903
  8. BIAXIN [Concomitant]
     Indication: COUGH
     Dosage: 500 MG, 2X/DAY:BID
     Route: 048
     Dates: start: 20130918, end: 20130927
  9. BIAXIN [Concomitant]
     Indication: SINUS CONGESTION
  10. FOCALIN [Concomitant]
     Indication: ATTENTION DEFICIT/HYPERACTIVITY DISORDER
     Dosage: 20 MG, 1X/DAY:QD
     Route: 048
     Dates: start: 20131004

REACTIONS (5)
  - Violence-related symptom [Not Recovered/Not Resolved]
  - Adjustment disorder [Unknown]
  - Insomnia [Recovered/Resolved]
  - Irritability [Not Recovered/Not Resolved]
  - Agitation [Recovered/Resolved]
